FAERS Safety Report 6505156-2 (Version None)
Quarter: 2009Q4

REPORT INFORMATION
  Report Type: 
  Country: None (occurrence: None)
  Receive Date: 20091218
  Receipt Date: 20091211
  Transmission Date: 20100525
  Serious: Yes (Hospitalization)
  Sender: FDA-Public Use
  Company Number: JP-B.I. PHARMACEUTICALS,INC./RIDGEFIELD-2009-DE-06527GD

PATIENT
  Age: 17 Year
  Sex: Female

DRUGS (5)
  1. DIPYRIDAMOLE [Suspect]
     Indication: IGA NEPHROPATHY
     Route: 048
  2. LISINOPRIL [Suspect]
     Indication: IGA NEPHROPATHY
     Route: 048
  3. CEFMETAZOLE [Suspect]
     Indication: GASTROENTERITIS
  4. NSAID'S [Suspect]
     Indication: GASTROENTERITIS
  5. DIURETICS [Suspect]
     Indication: RENAL IMPAIRMENT

REACTIONS (4)
  - NO THERAPEUTIC RESPONSE [None]
  - PERITONEAL DIALYSIS [None]
  - RENAL IMPAIRMENT [None]
  - RENAL TUBULAR NECROSIS [None]
